FAERS Safety Report 23566216 (Version 1)
Quarter: 2024Q1

REPORT INFORMATION
  Report Type: Report from Study
  Country: JP (occurrence: JP)
  Receive Date: 20240226
  Receipt Date: 20240226
  Transmission Date: 20240410
  Serious: Yes (Other)
  Sender: FDA-Public Use
  Company Number: JP-TAKEDA-2021TUS005269

PATIENT
  Age: 32 Year
  Sex: Female

DRUGS (9)
  1. GUANFACINE HYDROCHLORIDE [Suspect]
     Active Substance: GUANFACINE HYDROCHLORIDE
     Indication: Attention deficit hyperactivity disorder
     Dosage: 1 MILLIGRAM, QD
     Route: 048
     Dates: start: 20200814, end: 20200904
  2. GUANFACINE HYDROCHLORIDE [Suspect]
     Active Substance: GUANFACINE HYDROCHLORIDE
     Dosage: 2 MILLIGRAM, QD
     Route: 048
     Dates: start: 20200905, end: 20201128
  3. FLUNITRAZEPAM [Concomitant]
     Active Substance: FLUNITRAZEPAM
     Route: 065
     Dates: end: 20201128
  4. AMOBARBITAL SODIUM [Concomitant]
     Active Substance: AMOBARBITAL SODIUM
     Route: 065
     Dates: end: 20201128
  5. BROMISOVAL [Concomitant]
     Active Substance: BROMISOVAL
     Route: 065
     Dates: end: 20201128
  6. LACTOSE [Concomitant]
     Active Substance: LACTOSE
     Route: 065
     Dates: end: 20201128
  7. DEPAS [Concomitant]
     Route: 065
     Dates: end: 20201128
  8. BLONANSERIN [Concomitant]
     Active Substance: BLONANSERIN
     Route: 065
     Dates: end: 20201128
  9. BROTIZOLAM [Concomitant]
     Active Substance: BROTIZOLAM
     Route: 065
     Dates: end: 20201128

REACTIONS (2)
  - Mental impairment [Recovered/Resolved]
  - Asthenia [Recovered/Resolved]

NARRATIVE: CASE EVENT DATE: 20200926
